FAERS Safety Report 7605459-4 (Version None)
Quarter: 2011Q3

REPORT INFORMATION
  Report Type: 
  Country: None (occurrence: None)
  Receive Date: 20110713
  Receipt Date: 20110707
  Transmission Date: 20111222
  Serious: No
  Sender: FDA-Public Use
  Company Number: US-PFIZER INC-2011154036

PATIENT
  Sex: Female
  Weight: 65.76 kg

DRUGS (1)
  1. ALAVERT [Suspect]
     Indication: HYPERSENSITIVITY
     Dosage: 10 MG AS NEEDED
     Route: 048
     Dates: start: 20080101, end: 20110101

REACTIONS (1)
  - DRUG INEFFECTIVE [None]
